FAERS Safety Report 6284902-X (Version None)
Quarter: 2009Q3

REPORT INFORMATION
  Report Type: 
  Country: None (occurrence: None)
  Receive Date: 20090727
  Receipt Date: 20090722
  Transmission Date: 20100115
  Serious: Yes (Death, Hospitalization)
  Sender: FDA-Public Use
  Company Number: EC-ABBOTT-09R-047-0586642-00

PATIENT
  Sex: Male

DRUGS (1)
  1. SURVANTA [Suspect]
     Indication: NEONATAL RESPIRATORY DISTRESS SYNDROME
     Dosage: 2.4 ML REPEATED AFTER 8 HOURS GIVEN INTRATRACHEAL OTHER = PER ENDOTRACHEAL TUBE
     Route: 050
     Dates: start: 20090720, end: 20090721

REACTIONS (2)
  - NEONATAL RESPIRATORY DISTRESS SYNDROME [None]
  - TRAUMATIC DELIVERY [None]
